FAERS Safety Report 10217259 (Version 1)
Quarter: 2014Q2

REPORT INFORMATION
  Report Type: Report from Study
  Country: IN (occurrence: IN)
  Receive Date: 20140604
  Receipt Date: 20140604
  Transmission Date: 20141212
  Serious: Yes (Hospitalization, Other)
  Sender: FDA-Public Use
  Company Number: PHHY2014IN065532

PATIENT
  Age: 61 Year
  Sex: Male

DRUGS (1)
  1. DIOVAN [Suspect]
     Indication: BLOOD PRESSURE ABNORMAL
     Dosage: 80 MG, BID
     Route: 048

REACTIONS (4)
  - Pleural effusion [Recovering/Resolving]
  - Hydrothorax [Recovering/Resolving]
  - Coronary artery disease [Unknown]
  - Weight decreased [Recovered/Resolved]
